FAERS Safety Report 9851710 (Version 1)
Quarter: 2014Q1

REPORT INFORMATION
  Report Type: Spontaneous
  Country: US (occurrence: US)
  Receive Date: 20140129
  Receipt Date: 20140129
  Transmission Date: 20141002
  Serious: No
  Sender: FDA-Public Use
  Company Number: US-009507513-1401USA006756

PATIENT
  Age: 57 Year
  Sex: Female

DRUGS (2)
  1. ASMANEX TWISTHALER [Suspect]
     Indication: ASTHMA
     Dosage: 1 PUFF TWICE DAILY
     Route: 055
     Dates: start: 20140112, end: 20140112
  2. ALBUTEROL [Concomitant]
     Dosage: UNK

REACTIONS (4)
  - Lung disorder [Recovering/Resolving]
  - Asthma [Recovering/Resolving]
  - Hypersensitivity [Recovering/Resolving]
  - Product container issue [Unknown]
